FAERS Safety Report 14836968 (Version 1)
Quarter: 2018Q2

REPORT INFORMATION
  Report Type: Spontaneous
  Country: GB (occurrence: GB)
  Receive Date: 20180502
  Receipt Date: 20180502
  Transmission Date: 20180711
  Serious: Yes (Other)
  Sender: FDA-Public Use
  Company Number: GB-TEVA-2018-GB-887444

PATIENT
  Age: 62 Year
  Sex: Female

DRUGS (1)
  1. ALENDRONIC ACID [Suspect]
     Active Substance: ALENDRONIC ACID
     Indication: OSTEOPOROSIS
     Route: 065
     Dates: start: 200407, end: 200706

REACTIONS (5)
  - Oral dysaesthesia [Recovered/Resolved]
  - Osteosclerosis [Recovering/Resolving]
  - Primary sequestrum [Recovered/Resolved]
  - Osteonecrosis of jaw [Recovering/Resolving]
  - Osteolysis [Recovered/Resolved]

NARRATIVE: CASE EVENT DATE: 200807
